FAERS Safety Report 19891500 (Version 1)
Quarter: 2021Q3

REPORT INFORMATION
  Report Type: Spontaneous
  Country: JP (occurrence: JP)
  Receive Date: 20210927
  Receipt Date: 20210927
  Transmission Date: 20211014
  Serious: Yes (Death, Other)
  Sender: FDA-Public Use
  Company Number: NVSJ2021JP014335

PATIENT
  Age: 82 Year

DRUGS (2)
  1. EXELON PATCH [Suspect]
     Active Substance: RIVASTIGMINE
     Dosage: PATCH7.5(CM2)
     Route: 062
     Dates: start: 20170803
  2. EXELON PATCH [Suspect]
     Active Substance: RIVASTIGMINE
     Indication: DEMENTIA ALZHEIMER^S TYPE
     Dosage: 9 MG
     Route: 062
     Dates: start: 20170706, end: 20170802

REACTIONS (4)
  - Cerebral infarction [Unknown]
  - Death [Fatal]
  - Pruritus [Unknown]
  - Subarachnoid haemorrhage [Unknown]

NARRATIVE: CASE EVENT DATE: 201808
